FAERS Safety Report 4924608-X (Version None)
Quarter: 2006Q1

REPORT INFORMATION
  Report Type: 
  Country: None (occurrence: None)
  Receive Date: 20060127
  Receipt Date: 20051210
  Transmission Date: 20060701
  Serious: Yes (Other)
  Sender: FDA-Public Use
  Company Number: 2005144904

PATIENT
  Sex: Female

DRUGS (7)
  1. PREGABALIN (PREGABALIN) [Suspect]
     Indication: NEUROPATHY
     Dosage: 150 MG (50 MG, 3 IN 1 D), ORAL
     Route: 048
     Dates: start: 20050929, end: 20051017
  2. AMBIEN [Concomitant]
  3. DIAZEPAM [Concomitant]
  4. POTASSIUM [Concomitant]
  5. NORCO [Concomitant]
  6. WELLBUTRIN [Concomitant]
  7. MAXALT [Concomitant]

REACTIONS (1)
  - VAGINAL HAEMORRHAGE [None]
